FAERS Safety Report 8960508 (Version 1)
Quarter: 2012Q4

REPORT INFORMATION
  Report Type: Spontaneous
  Country: US (occurrence: None)
  Receive Date: 20121211
  Receipt Date: 20121211
  Transmission Date: 20130627
  Serious: Yes (Death)
  Sender: FDA-Public Use
  Company Number: None

PATIENT
  Age: 83 Year
  Sex: Female
  Weight: 87.54 kg

DRUGS (2)
  1. OXALIPLATIN [Suspect]
     Indication: COLON CANCER
     Dosage: 243 mg Day 1  IV
     Route: 042
     Dates: start: 20111111, end: 20111111
  2. XELODA [Suspect]
     Indication: CHEMOTHERAPY
     Dosage: 1500 mg Daily po
     Route: 048
     Dates: start: 20111112, end: 20120103

REACTIONS (9)
  - Tremor [None]
  - Diarrhoea [None]
  - Vomiting [None]
  - Discomfort [None]
  - Pain [None]
  - Feeling cold [None]
  - Balance disorder [None]
  - Stomatitis [None]
  - Dehydration [None]
